FAERS Safety Report 5463193-3 (Version None)
Quarter: 2007Q3

REPORT INFORMATION
  Report Type: 
  Country: None (occurrence: None)
  Receive Date: 20070920
  Receipt Date: 20070917
  Transmission Date: 20080115
  Serious: Yes (Hospitalization)
  Sender: FDA-Public Use
  Company Number: A0682816A

PATIENT
  Age: 10 Month
  Sex: Male
  Weight: 12 kg

DRUGS (1)
  1. CEFUROXIME [Suspect]
     Indication: DRUG USE FOR UNKNOWN INDICATION
     Route: 048
     Dates: start: 20070903

REACTIONS (2)
  - BRONCHITIS [None]
  - DRUG ADMINISTRATION ERROR [None]
